FAERS Safety Report 8475162 (Version 4)
Quarter: 2013Q3

REPORT INFORMATION
  Report Type: Spontaneous
  Country: US (occurrence: US)
  Receive Date: 20120324
  Receipt Date: 20130729
  Transmission Date: 20140515
  Serious: Yes (Other)
  Sender: FDA-Public Use
  Company Number: US-AMGEN-USASP2012017209

PATIENT
  Age: 0 Day
  Sex: Male

DRUGS (13)
  1. ENBREL [Suspect]
     Dosage: 50 MG, QWK
     Route: 064
     Dates: start: 201002
  2. ENBREL [Suspect]
     Dosage: UNK
  3. SULPHASALAZINE [Concomitant]
     Dosage: 5 PILLS DAILY
     Dates: end: 20120127
  4. PREDNISONE [Concomitant]
     Dosage: 5 MG, DAILY
  5. PREDNISONE [Concomitant]
     Dosage: 10 MG, UNK
  6. PREDNISONE [Concomitant]
     Dosage: 15 MG, UNK
  7. PREDNISONE [Concomitant]
     Dosage: 20 MG, UNK
  8. FOLIC ACID [Concomitant]
     Dosage: 800 UNK, DAILY
  9. PRENATAL VITAMINS                  /01549301/ [Concomitant]
     Dosage: UNK UNK, QD
  10. VITAMIN D                          /00107901/ [Concomitant]
     Dosage: 2000 MG, QD
  11. CALCIUM [Concomitant]
     Dosage: 2000 MG, QD
  12. PREVACID [Concomitant]
     Dosage: 2 ML, QD
     Dates: start: 201204
  13. VITAMIN D3 [Concomitant]
     Dosage: 400 IU, QD
     Dates: start: 201203

REACTIONS (7)
  - Premature baby [Recovered/Resolved]
  - Body temperature fluctuation [Recovered/Resolved]
  - Feeding disorder neonatal [Recovered/Resolved]
  - Torticollis [Unknown]
  - Eczema [Unknown]
  - Milk allergy [Unknown]
  - Exposure during breast feeding [Not Recovered/Not Resolved]
